FAERS Safety Report 8189668-4 (Version None)
Quarter: 2012Q1

REPORT INFORMATION
  Report Type: 
  Country: None (occurrence: None)
  Receive Date: 20120305
  Receipt Date: 20120217
  Transmission Date: 20120608
  Serious: Yes (Hospitalization)
  Sender: FDA-Public Use
  Company Number: 2012POI057300017

PATIENT
  Age: 76 Year
  Sex: Male

DRUGS (7)
  1. TORSEMIDE [Concomitant]
  2. ATENOLOL [Concomitant]
  3. INSULIN (INSULIN) [Concomitant]
  4. VENLAFAXINE HCL EXTENDED-RELEASE [Suspect]
     Indication: DEPRESSION
     Dosage: 37.5 MG (37.5 MG, 1 IN 1 D), PER ORAL 75 MG (37.5 MG, 2 IN 1 D), PER ORAL
     Route: 048
  5. HYDROCHLOROTHIAZIDE [Concomitant]
  6. ACETYLSALICYLIC ACID SRT [Concomitant]
  7. LEVOTHYROXINE SODIUM [Concomitant]

REACTIONS (11)
  - LEUKOCYTOSIS [None]
  - GAMMA-GLUTAMYLTRANSFERASE INCREASED [None]
  - CULTURE POSITIVE [None]
  - DEPRESSION [None]
  - NORMOCHROMIC NORMOCYTIC ANAEMIA [None]
  - CHOLECYSTITIS ACUTE [None]
  - WEIGHT DECREASED [None]
  - DECREASED APPETITE [None]
  - LIVER ABSCESS [None]
  - HYPERTENSION [None]
  - ESCHERICHIA INFECTION [None]
